FAERS Safety Report 9869219 (Version 1)
Quarter: 2014Q1

REPORT INFORMATION
  Report Type: Report from Study
  Country: JP (occurrence: JP)
  Receive Date: 20140205
  Receipt Date: 20140205
  Transmission Date: 20141002
  Serious: Yes (Death, Congenital Anomaly)
  Sender: FDA-Public Use
  Company Number: JP-MERCK-1402JPN000212

PATIENT
  Sex: 0

DRUGS (7)
  1. FOLLISTIM [Suspect]
     Indication: IN VITRO FERTILISATION
     Dosage: DAILY DOSE: 450 UNDER 1000 UNIT,QD
     Route: 064
     Dates: start: 20110211, end: 20110212
  2. FOLLISTIM [Suspect]
     Dosage: DAILY DOSE: 300 UNDER 1000 UNIT
     Route: 064
     Dates: start: 20110213, end: 20110216
  3. GANIREST SUBCUTANEOUS 0.25MG SYRINGE [Suspect]
     Indication: PREVENTION OF PREMATURE OVULATION
     Dosage: 0.25 MG, QD
     Route: 064
     Dates: start: 20110217, end: 20110218
  4. MENOTROPINS [Concomitant]
     Indication: IN VITRO FERTILISATION
     Dosage: DAILY DOSE: 300 UNDER 1000 UNIT
     Route: 064
     Dates: start: 20110217, end: 20110219
  5. GONADOTROPIN, CHORIONIC [Concomitant]
     Indication: OVULATION INDUCTION
     Dosage: DAILY DOSE: 5 THOUSAND-MILLION UNIT,QD
     Route: 064
     Dates: start: 20110219, end: 20110219
  6. LUTORAL (CHLORMADINONE ACETATE) [Concomitant]
     Indication: IN VITRO FERTILISATION
     Dosage: DAILY DOSE: 12 MG
     Route: 064
     Dates: start: 20110226, end: 20110310
  7. PROGESTONE DEPOT [Concomitant]
     Indication: IN VITRO FERTILISATION
     Dosage: 125 MG, QD
     Route: 064
     Dates: start: 20110226, end: 20110226

REACTIONS (2)
  - Trisomy 18 [Fatal]
  - Foetal exposure during pregnancy [Unknown]
